FAERS Safety Report 16744789 (Version 2)
Quarter: 2019Q3

REPORT INFORMATION
  Report Type: Spontaneous
  Country: JP (occurrence: JP)
  Receive Date: 20190827
  Receipt Date: 20190923
  Transmission Date: 20191005
  Serious: No
  Sender: FDA-Public Use
  Company Number: JP-BEH-2019105662

PATIENT
  Age: 41 Year
  Sex: Female

DRUGS (13)
  1. MAGMITT [Concomitant]
     Active Substance: MAGNESIUM OXIDE
  2. DANTRIUM [Concomitant]
     Active Substance: DANTROLENE SODIUM
  3. LYRICA [Concomitant]
     Active Substance: PREGABALIN
  4. CERCINE [Concomitant]
     Active Substance: DIAZEPAM
  5. BOFUTSUSHOSAN [Concomitant]
     Active Substance: HERBALS
     Route: 048
  6. AMITIZA [Concomitant]
     Active Substance: LUBIPROSTONE
  7. LAXOBERON [Concomitant]
     Active Substance: SODIUM PICOSULFATE
  8. REBAMIPIDE [Concomitant]
     Active Substance: REBAMIPIDE
  9. LOXONIN [Concomitant]
     Active Substance: LOXOPROFEN SODIUM
  10. YOKUKANSAN [Concomitant]
     Active Substance: HERBALS
  11. RIVOTRIL [Concomitant]
     Active Substance: CLONAZEPAM
  12. HIZENTRA [Suspect]
     Active Substance: HUMAN IMMUNOGLOBULIN G
     Indication: CHRONIC INFLAMMATORY DEMYELINATING POLYRADICULONEUROPATHY
     Dosage: 12 GRAM, QW
     Route: 058
     Dates: start: 20190704
  13. GABAPEN [Concomitant]
     Active Substance: GABAPENTIN

REACTIONS (3)
  - Needle issue [Unknown]
  - Underdose [Unknown]
  - No adverse event [Unknown]

NARRATIVE: CASE EVENT DATE: 20190704
